FAERS Safety Report 8338040-2 (Version None)
Quarter: 2012Q2

REPORT INFORMATION
  Report Type: 
  Country: None (occurrence: None)
  Receive Date: 20120504
  Receipt Date: 20120503
  Transmission Date: 20120825
  Serious: Yes (Other)
  Sender: FDA-Public Use
  Company Number: US-PFIZER INC-2008051816

PATIENT
  Sex: Female
  Weight: 77.098 kg

DRUGS (13)
  1. PERCOCET [Concomitant]
     Dosage: UNK
  2. CHANTIX [Interacting]
     Dosage: 1 MG, 3X/DAY
     Route: 048
     Dates: start: 20080101, end: 20081001
  3. ZESTRIL [Concomitant]
     Dosage: UNK
  4. CHANTIX [Suspect]
     Indication: SMOKING CESSATION THERAPY
     Dosage: 1 MG, 1X/DAY
     Route: 048
     Dates: start: 20080605, end: 20080101
  5. DEPAKOTE [Concomitant]
     Dosage: UNK
     Dates: start: 20060601
  6. VISTARIL [Concomitant]
     Dosage: UNK
  7. PRAZOSIN HCL [Concomitant]
     Indication: NIGHTMARE
     Dosage: UNK
  8. CELEXA [Concomitant]
     Dosage: UNK
  9. CHANTIX [Interacting]
     Dosage: 1 MG, 2X/DAY
     Route: 048
     Dates: start: 20080101, end: 20080101
  10. CHANTIX [Interacting]
     Dosage: 1 MG, 3X/DAY
     Route: 048
     Dates: start: 20081028
  11. TOPROL-XL [Interacting]
     Indication: HYPERTENSION
     Dosage: UNK, 2X/DAY
  12. GEODON [Concomitant]
     Dosage: UNK
     Dates: start: 20060601
  13. PRILOSEC [Concomitant]
     Dosage: UNK

REACTIONS (10)
  - COLD SWEAT [None]
  - BARRETT'S OESOPHAGUS [None]
  - DRUG INTERACTION [None]
  - FORMICATION [None]
  - TREMOR [None]
  - CONFUSIONAL STATE [None]
  - WITHDRAWAL SYNDROME [None]
  - DRUG DOSE OMISSION [None]
  - HYPERHIDROSIS [None]
  - ABNORMAL DREAMS [None]
